FAERS Safety Report 20571461 (Version 3)
Quarter: 2022Q2

REPORT INFORMATION
  Report Type: Spontaneous
  Country: FR (occurrence: FR)
  Receive Date: 20220309
  Receipt Date: 20220426
  Transmission Date: 20220721
  Serious: No
  Sender: FDA-Public Use
  Company Number: FR-ASTELLAS-2022US008880

PATIENT
  Age: 72 Year
  Sex: Male

DRUGS (3)
  1. XTANDI [Suspect]
     Active Substance: ENZALUTAMIDE
     Indication: Prostate cancer
     Dosage: 160 MG, ONCE DAILY (4 TABLETS X 40 MG)
     Route: 048
     Dates: start: 20211230
  2. XTANDI [Suspect]
     Active Substance: ENZALUTAMIDE
     Dosage: 120 MG, ONCE DAILY (3 TABLETS X 40 MG)
     Route: 048
     Dates: start: 20220419, end: 20220419
  3. ENANTONE LP [Concomitant]
     Active Substance: LEUPROLIDE ACETATE
     Indication: Product used for unknown indication
     Dosage: 30 MG, EVERY 6 MONTHS
     Route: 065
     Dates: start: 20211230

REACTIONS (11)
  - Abdominal rigidity [Recovered/Resolved]
  - Abdominal pain upper [Recovering/Resolving]
  - Ageusia [Not Recovered/Not Resolved]
  - Dizziness [Recovered/Resolved]
  - Nausea [Not Recovered/Not Resolved]
  - Fatigue [Not Recovered/Not Resolved]
  - Headache [Not Recovered/Not Resolved]
  - SARS-CoV-2 test positive [Unknown]
  - Nasopharyngitis [Recovered/Resolved]
  - Limb discomfort [Not Recovered/Not Resolved]
  - Product packaging quantity issue [Unknown]

NARRATIVE: CASE EVENT DATE: 20220301
